FAERS Safety Report 13373191 (Version 1)
Quarter: 2017Q1

REPORT INFORMATION
  Report Type: Spontaneous
  Country: CN (occurrence: CN)
  Receive Date: 20170327
  Receipt Date: 20170327
  Transmission Date: 20170429
  Serious: Yes (Other)
  Sender: FDA-Public Use
  Company Number: CN-GLAXOSMITHKLINE-CN2017GSK041244

PATIENT
  Age: 67 Year
  Sex: Male

DRUGS (1)
  1. ACYCLOVIR. [Suspect]
     Active Substance: ACYCLOVIR
     Indication: VARICELLA ZOSTER VIRUS INFECTION
     Dosage: 5 MG/KG, 8 HOURLY
     Route: 042

REACTIONS (9)
  - Mouth haemorrhage [Recovering/Resolving]
  - Tongue haematoma [Recovering/Resolving]
  - Tongue disorder [Recovering/Resolving]
  - Condition aggravated [Recovering/Resolving]
  - Pain [Recovering/Resolving]
  - Oral mucosa haematoma [Recovering/Resolving]
  - Immune thrombocytopenic purpura [Recovering/Resolving]
  - Ecchymosis [Recovering/Resolving]
  - Oral disorder [Recovering/Resolving]
